FAERS Safety Report 4300666-0 (Version None)
Quarter: 2004Q1

REPORT INFORMATION
  Report Type: 
  Country: None (occurrence: None)
  Receive Date: 20040218
  Receipt Date: 20040202
  Transmission Date: 20041129
  Serious: Yes (Other)
  Sender: FDA-Public Use
  Company Number: FR_040103436

PATIENT
  Age: 57 Year
  Sex: Female

DRUGS (1)
  1. EVISTA [Suspect]
     Indication: OSTEOPOROSIS
     Dosage: 60 MG/DAY
     Dates: start: 20030101, end: 20040119

REACTIONS (3)
  - CARBOHYDRATE ANTIGEN 125 INCREASED [None]
  - NEOPLASM RECURRENCE [None]
  - PLATELET COUNT INCREASED [None]
